FAERS Safety Report 8976581 (Version 1)
Quarter: 2012Q4

REPORT INFORMATION
  Report Type: Report from Study
  Country: CA (occurrence: CA)
  Receive Date: 20121220
  Receipt Date: 20121220
  Transmission Date: 20130627
  Serious: Yes (Other)
  Sender: FDA-Public Use
  Company Number: CA-JNJFOC-20120912839

PATIENT
  Age: 28 None
  Sex: Male
  Weight: 71.3 kg

DRUGS (1)
  1. INFLIXIMAB [Suspect]
     Indication: CROHN^S DISEASE
     Route: 042
     Dates: start: 20100510

REACTIONS (2)
  - HIV test positive [Not Recovered/Not Resolved]
  - Meningitis aseptic [Recovered/Resolved]
